FAERS Safety Report 24405789 (Version 1)
Quarter: 2024Q4

REPORT INFORMATION
  Report Type: Report from Study
  Country: US (occurrence: US)
  Receive Date: 20241007
  Receipt Date: 20241007
  Transmission Date: 20250114
  Serious: Yes (Hospitalization)
  Sender: EISAI
  Company Number: US-Eisai-EC-2024-175853

PATIENT
  Age: 48 Year
  Sex: Male

DRUGS (1)
  1. LENVIMA [Suspect]
     Active Substance: LENVATINIB
     Indication: Renal cancer
     Route: 048
     Dates: start: 202309, end: 2024

REACTIONS (2)
  - Organ failure [Recovered/Resolved]
  - Fat tissue increased [Recovered/Resolved]

NARRATIVE: CASE EVENT DATE: 20240101
